FAERS Safety Report 8428763-9 (Version None)
Quarter: 2012Q2

REPORT INFORMATION
  Report Type: 
  Country: None (occurrence: None)
  Receive Date: 20120604
  Receipt Date: 20120518
  Transmission Date: 20120825
  Serious: Yes (Other)
  Sender: FDA-Public Use
  Company Number: 2012AP000357

PATIENT
  Age: 61 Year
  Sex: Female

DRUGS (5)
  1. CLOZAPINE [Suspect]
     Indication: PRODUCT USED FOR UNKNOWN INDICATION
     Dosage: 400;50;125 MG, QD, AM, HS,
  2. LORAZEPAM [Concomitant]
  3. OLANZAPINE [Suspect]
     Indication: PRODUCT USED FOR UNKNOWN INDICATION
     Dosage: 10 MG, UNKNOWN
  4. ARIPIPRAZOLE [Concomitant]
  5. SODIUM VALPROATE (VAOPROATE SODIUM) [Concomitant]

REACTIONS (8)
  - URINARY TRACT INFECTION [None]
  - ACUTE MYOCARDIAL INFARCTION [None]
  - ELECTROCARDIOGRAM QT PROLONGED [None]
  - CATATONIA [None]
  - DRUG WITHDRAWAL SYNDROME [None]
  - ENCEPHALOPATHY [None]
  - HYPERGLYCAEMIA [None]
  - NO THERAPEUTIC RESPONSE [None]
